FAERS Safety Report 10661870 (Version 8)
Quarter: 2015Q2

REPORT INFORMATION
  Report Type: Spontaneous
  Country: CA (occurrence: None)
  Receive Date: 20141216
  Receipt Date: 20150608
  Transmission Date: 20150821
  Serious: Yes (Other)
  Sender: FDA-Public Use
  Company Number: CA-2014VAL000653

PATIENT
  Age: 78 Year
  Sex: Male

DRUGS (4)
  1. METOPROLOL TARTRATE. [Suspect]
     Active Substance: METOPROLOL TARTRATE
     Indication: HYPERTENSION
     Route: 048
     Dates: end: 201412
  2. BEXSERO [Suspect]
     Active Substance: MENINGOCOCCAL GROUP B VACCINE
     Indication: IMMUNISATION
     Route: 030
     Dates: start: 20140806, end: 20140806
  3. COLCHICINE (COLCHICINE) [Concomitant]
     Active Substance: COLCHICINE
  4. ALLOPURINOL (ALLOPURINOL) [Concomitant]
     Active Substance: ALLOPURINOL

REACTIONS (16)
  - Vaccination site pain [None]
  - Influenza [None]
  - Disease progression [None]
  - Cardiomegaly [None]
  - Rhinorrhoea [None]
  - Haemoglobinuria [None]
  - Blood pressure decreased [None]
  - Paroxysmal nocturnal haemoglobinuria [None]
  - Cough [None]
  - Gout [None]
  - Nasal congestion [None]
  - Off label use [None]
  - Nasopharyngitis [None]
  - Pallor [None]
  - Jaundice [None]
  - Dizziness [None]

NARRATIVE: CASE EVENT DATE: 2014
